FAERS Safety Report 7385230-1 (Version None)
Quarter: 2011Q1

REPORT INFORMATION
  Report Type: 
  Country: None (occurrence: None)
  Receive Date: 20110330
  Receipt Date: 20110325
  Transmission Date: 20110831
  Serious: Yes (Other)
  Sender: FDA-Public Use
  Company Number: US-MERCK-1102USA00346

PATIENT

DRUGS (1)
  1. SINEMET [Suspect]
     Route: 048

REACTIONS (1)
  - NEUROENDOCRINE CARCINOMA OF THE SKIN [None]
